FAERS Safety Report 19984909 (Version 1)
Quarter: 2021Q4

REPORT INFORMATION
  Report Type: Spontaneous
  Country: JP (occurrence: JP)
  Receive Date: 20211022
  Receipt Date: 20211022
  Transmission Date: 20220303
  Serious: Yes (Death, Life-Threatening, Hospitalization, Other)
  Sender: FDA-Public Use
  Company Number: JP-MYLANLABS-2021M1074280

PATIENT
  Age: 88 Year
  Sex: Female
  Weight: 34.8 kg

DRUGS (8)
  1. TORSEMIDE [Suspect]
     Active Substance: TORSEMIDE
     Indication: Product used for unknown indication
     Dosage: 8 MILLIGRAM, QD
     Dates: start: 20200620
  2. FUROSEMIDE [Suspect]
     Active Substance: FUROSEMIDE
     Indication: Product used for unknown indication
     Dosage: 40 MILLIGRAM, QD
     Route: 048
     Dates: start: 201312
  3. SAMSCA [Suspect]
     Active Substance: TOLVAPTAN
     Indication: Cardiac failure chronic
     Dosage: 15 MILLIGRAM, QD
     Route: 048
  4. CARVEDILOL [Concomitant]
     Active Substance: CARVEDILOL
     Dosage: UNK
     Dates: start: 20131102, end: 20210620
  5. SPIRONOLACTONE [Concomitant]
     Active Substance: SPIRONOLACTONE
     Dosage: UNK
     Dates: start: 20131109, end: 20210620
  6. POTASSIUM ASPARTATE [Concomitant]
     Active Substance: POTASSIUM ASPARTATE
     Dosage: UNK
     Dates: start: 20201224, end: 20210527
  7. LINZESS [Concomitant]
     Active Substance: LINACLOTIDE
     Dosage: UNK
     Dates: start: 20210319, end: 20210520
  8. TOPIROXOSTAT [Concomitant]
     Active Substance: TOPIROXOSTAT
     Dosage: UNK
     Dates: start: 20210327, end: 20210620

REACTIONS (6)
  - Lymphocyte count decreased [Fatal]
  - Aortic valve incompetence [Unknown]
  - Cardiac failure chronic [Unknown]
  - Multiple organ dysfunction syndrome [Unknown]
  - Anuria [Unknown]
  - Blood pressure decreased [Unknown]

NARRATIVE: CASE EVENT DATE: 20210318
